FAERS Safety Report 16070608 (Version 1)
Quarter: 2019Q1

REPORT INFORMATION
  Report Type: Report from Study
  Country: US (occurrence: US)
  Receive Date: 20190314
  Receipt Date: 20190314
  Transmission Date: 20190418
  Serious: Yes (Hospitalization)
  Sender: FDA-Public Use
  Company Number: US-ROCHE-689069

PATIENT
  Age: 66 Year
  Sex: Female
  Weight: 77.6 kg

DRUGS (25)
  1. ENALAPRIL [Concomitant]
     Active Substance: ENALAPRIL
     Route: 065
     Dates: start: 20000630, end: 20081027
  2. GABAPENTIN. [Concomitant]
     Active Substance: GABAPENTIN
     Route: 065
  3. TRASTUZUMAB. [Suspect]
     Active Substance: TRASTUZUMAB
     Dosage: MAINTENANCE DOSE APPROX. 3 WEEKS TO LOADING DOSE. LAST DOSE PRIOR TO SAE-08 FEB 2010
     Route: 042
  4. PEGFILGRASTIM [Concomitant]
     Active Substance: PEGFILGRASTIM
     Route: 065
     Dates: start: 20080827, end: 20081217
  5. PLACEBO [Suspect]
     Active Substance: UNSPECIFIED INGREDIENT
     Indication: HER-2 POSITIVE BREAST CANCER
     Dosage: LOADING DOSE. AS PER PROTOCOL
     Route: 042
     Dates: start: 20080825
  6. DOCETAXEL. [Suspect]
     Active Substance: DOCETAXEL
     Indication: HER-2 POSITIVE BREAST CANCER
     Route: 042
  7. SIMVASTATIN. [Concomitant]
     Active Substance: SIMVASTATIN
     Dosage: FREQUENCY: PER PRN
     Route: 048
  8. COREG [Concomitant]
     Active Substance: CARVEDILOL
     Route: 065
  9. COREG [Concomitant]
     Active Substance: CARVEDILOL
     Dosage: FREQUENCY REPORTED AS DAILY.
     Route: 065
  10. OXYCONTIN [Concomitant]
     Active Substance: OXYCODONE HYDROCHLORIDE
     Dosage: FREQUENCY REPORTED AS DAILY.
     Route: 065
  11. MEDROL [Concomitant]
     Active Substance: METHYLPREDNISOLONE
     Route: 065
  12. TRASTUZUMAB. [Suspect]
     Active Substance: TRASTUZUMAB
     Indication: HER-2 POSITIVE BREAST CANCER
     Dosage: LOADING DOSE. DOSE: 8 MG/KG
     Route: 042
  13. DOCETAXEL. [Suspect]
     Active Substance: DOCETAXEL
     Dosage: LAST DOSE PRIOR TO SAE ON 06 OCTOBER 2008.
     Route: 042
  14. LISINOPRIL. [Concomitant]
     Active Substance: LISINOPRIL
     Dosage: FREQUENCY REPORTED AS DAILY.
     Route: 048
  15. PERCOCET [Concomitant]
     Active Substance: ACETAMINOPHEN\OXYCODONE HYDROCHLORIDE
     Dosage: TDD 5/325 MG, FREQUENCY REPORTED AS DAILY.
     Route: 065
  16. GREEN TEA EXTRACT [Concomitant]
     Route: 065
  17. EVENING PRIMROSE OIL [Concomitant]
     Active Substance: EVENING PRIMROSE OIL\HERBALS
     Route: 065
  18. RANEXA [Concomitant]
     Active Substance: RANOLAZINE
     Route: 065
  19. TYLENOL PM [Concomitant]
     Active Substance: ACETAMINOPHEN\DIPHENHYDRAMINE
     Route: 065
  20. PLACEBO [Suspect]
     Active Substance: UNSPECIFIED INGREDIENT
     Dosage: MAINTENANCE DOSE. LAST DOSE PRIOR TO SAE 08 FEBRUARY 2010.
     Route: 042
     Dates: start: 20080916
  21. ASA [Concomitant]
     Active Substance: ASPIRIN
     Route: 048
  22. NITROGLYCERIN. [Concomitant]
     Active Substance: NITROGLYCERIN
     Indication: CHEST PAIN
     Dosage: 0.4 MG PER  5 MINS X3PRN, DRUG NAME NITROQUICK.
     Route: 060
  23. LYRICA [Concomitant]
     Active Substance: PREGABALIN
     Dosage: FREQUENCY REPORTED AS DAILY.
     Route: 065
  24. METOPROLOL. [Concomitant]
     Active Substance: METOPROLOL
     Route: 065
  25. NEXIUM [Concomitant]
     Active Substance: ESOMEPRAZOLE MAGNESIUM
     Dosage: FREQUENCY REPORTED AS DAILY.
     Route: 065

REACTIONS (3)
  - Femur fracture [Recovered/Resolved]
  - Left ventricular dysfunction [Recovering/Resolving]
  - Chest pain [Recovered/Resolved]

NARRATIVE: CASE EVENT DATE: 20081023
